FAERS Safety Report 8176454-4 (Version None)
Quarter: 2012Q1

REPORT INFORMATION
  Report Type: 
  Country: None (occurrence: None)
  Receive Date: 20120228
  Receipt Date: 20120216
  Transmission Date: 20120608
  Serious: No
  Sender: FDA-Public Use
  Company Number: 2012SP008928

PATIENT
  Age: 42 Year
  Sex: Female

DRUGS (4)
  1. SAPHRIS [Suspect]
     Indication: BIPOLAR DISORDER
     Dosage: 5 MG;QD;SL
     Route: 060
  2. SAPHRIS [Suspect]
     Indication: POST-TRAUMATIC STRESS DISORDER
     Dosage: 5 MG;QD;SL
     Route: 060
  3. KEPPRA [Concomitant]
  4. PAXIL [Concomitant]

REACTIONS (1)
  - ANGIOEDEMA [None]
